FAERS Safety Report 17194730 (Version 1)
Quarter: 2019Q4

REPORT INFORMATION
  Report Type: Spontaneous
  Country: US (occurrence: US)
  Receive Date: 20191218
  Receipt Date: 20191218
  Transmission Date: 20200122
  Serious: No
  Sender: FDA-Public Use
  Company Number: None

PATIENT
  Age: 69 Year
  Sex: Female

DRUGS (2)
  1. ENOXAPARIN INJ 100MG/ML [Suspect]
     Active Substance: ENOXAPARIN SODIUM
     Indication: EMBOLISM
     Route: 058
     Dates: start: 201702
  2. ENOXAPARIN INJ 100MG/ML [Suspect]
     Active Substance: ENOXAPARIN SODIUM
     Indication: THROMBOSIS
     Route: 058
     Dates: start: 201702

REACTIONS (1)
  - Increased tendency to bruise [None]

NARRATIVE: CASE EVENT DATE: 20191218
